FAERS Safety Report 5076671-6 (Version None)
Quarter: 2006Q3

REPORT INFORMATION
  Report Type: 
  Country: None (occurrence: None)
  Receive Date: 20060807
  Receipt Date: 20060728
  Transmission Date: 20061208
  Serious: Yes (Hospitalization)
  Sender: FDA-Public Use
  Company Number: 2006BI010637

PATIENT
  Age: 61 Year
  Sex: Female
  Weight: 88.4514 kg

DRUGS (3)
  1. AVONEX [Suspect]
     Dosage: SEE IMAGE
     Route: 030
     Dates: start: 19960101, end: 20020101
  2. AVONEX [Suspect]
     Dosage: SEE IMAGE
     Route: 030
     Dates: start: 20020101, end: 20030101
  3. AVONEX [Suspect]
     Indication: MULTIPLE SCLEROSIS
     Dosage: 30 UG;QW;IM
     Route: 030
     Dates: start: 20030101

REACTIONS (3)
  - DECUBITUS ULCER [None]
  - HYPERTENSION [None]
  - MULTIPLE SCLEROSIS RELAPSE [None]
